FAERS Safety Report 7730631-2 (Version None)
Quarter: 2011Q3

REPORT INFORMATION
  Report Type: 
  Country: None (occurrence: None)
  Receive Date: 20110901
  Receipt Date: 20110901
  Transmission Date: 20111222
  Serious: Yes (Other)
  Sender: FDA-Public Use
  Company Number: None

PATIENT
  Sex: Male
  Weight: 86.1834 kg

DRUGS (1)
  1. TEGRETOL-XR [Suspect]
     Indication: EPILEPSY
     Dosage: 3-NOON 2-PM 1 DINNER 2-HS QID ORAL
     Route: 048
     Dates: start: 20110801, end: 20110815

REACTIONS (3)
  - DIPLOPIA [None]
  - CONVULSION [None]
  - CONDITION AGGRAVATED [None]
